FAERS Safety Report 5811601-8 (Version None)
Quarter: 2008Q3

REPORT INFORMATION
  Report Type: 
  Country: None (occurrence: None)
  Receive Date: 20080714
  Receipt Date: 20080704
  Transmission Date: 20090109
  Serious: Yes (Hospitalization)
  Sender: FDA-Public Use
  Company Number: TPG2008A00999

PATIENT
  Sex: Female

DRUGS (1)
  1. COMPETACT (PIOGLITAZONE HYDROCHLORIDE, METFORMIN HYDROCHLORIDE) [Suspect]
     Dosage: 15 MG PIOGLITAZONE / 850 MG METFORMIN PER ORAL
     Route: 048

REACTIONS (1)
  - FOOT FRACTURE [None]
